APPROVED DRUG PRODUCT: METHYLPREDNISOLONE
Active Ingredient: METHYLPREDNISOLONE
Strength: 32MG
Dosage Form/Route: TABLET;ORAL
Application: A209097 | Product #005
Applicant: CHARTWELL RX SCIENCES LLC
Approved: Feb 22, 2019 | RLD: No | RS: No | Type: DISCN